FAERS Safety Report 17584356 (Version 1)
Quarter: 2020Q1

REPORT INFORMATION
  Report Type: Spontaneous
  Country: US (occurrence: US)
  Receive Date: 20200326
  Receipt Date: 20200326
  Transmission Date: 20200409
  Serious: Yes (Death, Hospitalization, Other)
  Sender: FDA-Public Use
  Company Number: US-009507513-2003USA007723

PATIENT
  Weight: 66.67 kg

DRUGS (6)
  1. JANUMET [Suspect]
     Active Substance: METFORMIN HYDROCHLORIDE\SITAGLIPTIN PHOSPHATE
     Indication: TYPE 2 DIABETES MELLITUS
     Dosage: 50/1000 MG, BID
     Route: 048
     Dates: start: 20070710, end: 200710
  2. BYETTA [Suspect]
     Active Substance: EXENATIDE
     Dosage: 10 MCG/0.04 ML, BID
     Dates: start: 20071102, end: 20081102
  3. BYETTA [Suspect]
     Active Substance: EXENATIDE
     Dosage: 10 MCG/0.04 ML, BID
     Dates: start: 20090123, end: 201103
  4. BYETTA [Suspect]
     Active Substance: EXENATIDE
     Dosage: 10 MCG/0.04 ML, BID
     Dates: start: 20120215, end: 20120507
  5. VICTOZA [Suspect]
     Active Substance: LIRAGLUTIDE
     Indication: TYPE 2 DIABETES MELLITUS
     Dosage: 1.8 MILLIGRAM, QD
     Dates: start: 20110315, end: 201111
  6. BYETTA [Suspect]
     Active Substance: EXENATIDE
     Indication: TYPE 2 DIABETES MELLITUS
     Dosage: 5 MCG/0.02 ML, BID
     Dates: start: 20081103, end: 200902

REACTIONS (1)
  - Pancreatic carcinoma [Fatal]

NARRATIVE: CASE EVENT DATE: 20111230
